FAERS Safety Report 7396341-9 (Version None)
Quarter: 2011Q2

REPORT INFORMATION
  Report Type: 
  Country: None (occurrence: None)
  Receive Date: 20110406
  Receipt Date: 20110330
  Transmission Date: 20111010
  Serious: Yes (Death)
  Sender: FDA-Public Use
  Company Number: FR-SANOFI-AVENTIS-2011SA019789

PATIENT
  Age: 91 Year
  Sex: Female

DRUGS (9)
  1. PERFALGAN [Concomitant]
     Indication: PAIN
     Route: 042
     Dates: start: 20101109, end: 20101114
  2. CERVOXAN [Concomitant]
     Route: 048
     Dates: end: 20101114
  3. RANIPLEX [Suspect]
     Route: 042
     Dates: start: 20101111, end: 20101114
  4. CEFAZOLIN [Suspect]
     Indication: ANTIBIOTIC PROPHYLAXIS
     Route: 042
     Dates: start: 20101111, end: 20101114
  5. LOVENOX [Suspect]
     Indication: THROMBOSIS PROPHYLAXIS
     Route: 062
     Dates: start: 20101111, end: 20101114
  6. TOPALGIC [Concomitant]
     Indication: PAIN
     Route: 042
     Dates: start: 20101109, end: 20101114
  7. CACIT D3 [Concomitant]
     Route: 048
     Dates: end: 20101114
  8. PROFENID [Suspect]
     Route: 051
     Dates: start: 20101111, end: 20101112
  9. SPASFON [Concomitant]
     Route: 042
     Dates: start: 20101111, end: 20101111

REACTIONS (3)
  - CARDIOGENIC SHOCK [None]
  - RENAL FAILURE [None]
  - MULTI-ORGAN FAILURE [None]
